FAERS Safety Report 17183326 (Version 1)
Quarter: 2019Q4

REPORT INFORMATION
  Report Type: Spontaneous
  Country: US (occurrence: US)
  Receive Date: 20191126
  Receipt Date: 20191126
  Transmission Date: 20200122
  Serious: Yes (Other)
  Sender: FDA-Public Use
  Company Number: None

PATIENT
  Age: 69 Year
  Sex: Female
  Weight: 81.65 kg

DRUGS (1)
  1. CYCLOBENZAPRINE HCL 10MG TABS [Suspect]
     Active Substance: CYCLOBENZAPRINE
     Indication: MUSCLE SPASMS
     Dosage: ?          QUANTITY:60 DF DOSAGE FORM;?
     Route: 048
     Dates: start: 20190814, end: 20190821

REACTIONS (3)
  - Spinal disorder [None]
  - Contraindicated product administered [None]
  - Drug hypersensitivity [None]

NARRATIVE: CASE EVENT DATE: 20190814
